FAERS Safety Report 5004936-2 (Version None)
Quarter: 2006Q1

REPORT INFORMATION
  Report Type: 
  Country: None (occurrence: None)
  Receive Date: 20060321
  Receipt Date: 20060124
  Transmission Date: 20060701
  Serious: No
  Sender: FDA-Public Use
  Company Number: YPA20050643

PATIENT
  Age: 71 Year
  Sex: Male
  Weight: 76.8 kg

DRUGS (2)
  1. VESICARE [Suspect]
     Indication: STRESS INCONTINENCE
     Dosage: 5 MG, UID/QD, ORAL
     Route: 048
     Dates: start: 20051115
  2. SUDAFED 12 HOUR [Concomitant]

REACTIONS (2)
  - CONSTIPATION [None]
  - DRUG INEFFECTIVE [None]
